FAERS Safety Report 23768659 (Version 9)
Quarter: 2025Q3

REPORT INFORMATION
  Report Type: Spontaneous
  Country: US (occurrence: US)
  Receive Date: 20240422
  Receipt Date: 20250701
  Transmission Date: 20251021
  Serious: Yes (Other)
  Sender: BRISTOL-MYERS SQUIBB COMPANY
  Company Number: US-BRISTOL-MYERS SQUIBB COMPANY-2024-058787

PATIENT
  Age: 60 Year
  Sex: Female

DRUGS (1)
  1. REVLIMID [Suspect]
     Active Substance: LENALIDOMIDE
     Indication: 5q minus syndrome
     Route: 048

REACTIONS (13)
  - Peripheral swelling [Unknown]
  - Thrombosis [Unknown]
  - Breast mass [Unknown]
  - Diarrhoea [Unknown]
  - Vomiting [Unknown]
  - Joint swelling [Unknown]
  - Product dose omission issue [Unknown]
  - Somnolence [Unknown]
  - Fatigue [Unknown]
  - Product dose omission in error [Unknown]
  - Dyspepsia [Unknown]
  - Nausea [Unknown]
  - Fungal infection [Unknown]
